FAERS Safety Report 24132308 (Version 6)
Quarter: 2025Q1

REPORT INFORMATION
  Report Type: Spontaneous
  Country: US (occurrence: US)
  Receive Date: 20240724
  Receipt Date: 20250203
  Transmission Date: 20250409
  Serious: No
  Sender: BIOGEN
  Company Number: US-BIOGEN-2024BI01274283

PATIENT
  Sex: Female

DRUGS (2)
  1. TYSABRI [Suspect]
     Active Substance: NATALIZUMAB
     Indication: Multiple sclerosis
     Route: 050
     Dates: start: 20211104, end: 20231206
  2. TYSABRI [Suspect]
     Active Substance: NATALIZUMAB
     Route: 050
     Dates: start: 20240801

REACTIONS (4)
  - Eyelid function disorder [Not Recovered/Not Resolved]
  - Memory impairment [Unknown]
  - Infection [Recovered/Resolved with Sequelae]
  - Urinary tract infection [Not Recovered/Not Resolved]
